FAERS Safety Report 8385400 (Version 2)
Quarter: 2012Q4

REPORT INFORMATION
  Report Type: 
  Country: US (occurrence: US)
  Receive Date: 20120119
  Receipt Date: 20121016
  Transmission Date: 20130627
  Serious: Yes (Death)
  Sender: FDA-Public Use
  Company Number: 2012SP002847

PATIENT
  Age: 44 Year
  Sex: Female

DRUGS (2)
  1. XOPENEX [Suspect]
     Indication: CHRONIC OBSTRUCTIVE PULMONARY DISEASE
     Route: 055
     Dates: end: 20070101
  2. OXYGEN [Concomitant]
     Indication: OXYGEN SUPPLEMENTATION
     Dates: end: 20070101

REACTIONS (1)
  - Death [Fatal]
